FAERS Safety Report 25557172 (Version 4)
Quarter: 2025Q3

REPORT INFORMATION
  Report Type: Spontaneous
  Country: EU (occurrence: EU)
  Receive Date: 20250715
  Receipt Date: 20250731
  Transmission Date: 20251021
  Serious: Yes (Other)
  Sender: MYLAN
  Company Number: EU-Accord-466065

PATIENT
  Age: 68 Year
  Sex: Female

DRUGS (16)
  1. IMATINIB [Suspect]
     Active Substance: IMATINIB
     Indication: Chronic myeloid leukaemia
     Dosage: 400 MG, QD
  2. IMATINIB [Suspect]
     Active Substance: IMATINIB
     Dosage: 400 MG, QD
     Route: 065
  3. IMATINIB [Suspect]
     Active Substance: IMATINIB
     Dosage: 400 MG, QD
     Route: 065
  4. IMATINIB [Suspect]
     Active Substance: IMATINIB
     Dosage: 400 MG, QD
  5. NILOTINIB [Suspect]
     Active Substance: NILOTINIB
     Indication: Chronic myeloid leukaemia
     Dosage: 300 MILLIGRAM, BID
     Route: 065
  6. NILOTINIB [Suspect]
     Active Substance: NILOTINIB
     Dosage: 300 MILLIGRAM, BID
  7. NILOTINIB [Suspect]
     Active Substance: NILOTINIB
     Dosage: 300 MILLIGRAM, BID
  8. NILOTINIB [Suspect]
     Active Substance: NILOTINIB
     Dosage: 300 MILLIGRAM, BID
     Route: 065
  9. NILOTINIB [Suspect]
     Active Substance: NILOTINIB
     Dosage: 300 MG, BID
     Route: 065
  10. NILOTINIB [Suspect]
     Active Substance: NILOTINIB
     Dosage: 300 MG, BID
     Route: 065
  11. NILOTINIB [Suspect]
     Active Substance: NILOTINIB
     Dosage: 300 MG, BID
     Route: 065
  12. NILOTINIB [Suspect]
     Active Substance: NILOTINIB
     Dosage: 300 MG, BID
     Route: 065
  13. ASCIMINIB [Suspect]
     Active Substance: ASCIMINIB
     Indication: Chronic myeloid leukaemia
     Dosage: 40 MILLIGRAM, BID, 80 MG, QD
  14. ASCIMINIB [Suspect]
     Active Substance: ASCIMINIB
     Dosage: 40 MILLIGRAM, BID, 80 MG, QD
     Route: 065
  15. ASCIMINIB [Suspect]
     Active Substance: ASCIMINIB
     Dosage: 40 MILLIGRAM, BID, 80 MG, QD
     Route: 065
  16. ASCIMINIB [Suspect]
     Active Substance: ASCIMINIB
     Dosage: 40 MILLIGRAM, BID, 80 MG, QD

REACTIONS (10)
  - Thrombocytopenia [Unknown]
  - Therapeutic product effect incomplete [Unknown]
  - Oedema [Unknown]
  - Skin hyperpigmentation [Unknown]
  - Anaemia [Unknown]
  - Rash [Unknown]
  - Pruritus [Unknown]
  - Nail toxicity [Unknown]
  - Skin toxicity [Unknown]
  - Drug intolerance [Unknown]
